FAERS Safety Report 8532518-4 (Version None)
Quarter: 2012Q3

REPORT INFORMATION
  Report Type: 
  Country: None (occurrence: None)
  Receive Date: 20120724
  Receipt Date: 20120710
  Transmission Date: 20120928
  Serious: No
  Sender: FDA-Public Use
  Company Number: US-009507513-2012SP031305

PATIENT

DRUGS (10)
  1. VICTRELIS [Suspect]
     Indication: HEPATITIS C
     Dosage: 200 MG, UNK
     Route: 048
     Dates: start: 20110805, end: 20120219
  2. REBETOL [Suspect]
     Indication: HEPATITIS C
     Dosage: UNK
     Dates: start: 20110805, end: 20120219
  3. PEGASYS [Concomitant]
     Indication: HEPATITIS C
     Dosage: UNK
     Dates: start: 20110805, end: 20120219
  4. ZOLPIDEM TARTRATE [Concomitant]
     Dosage: 10 MG, QD
  5. BENICAR HCT [Concomitant]
     Dosage: DOSE: 40/25 MG
  6. LUNESTA [Concomitant]
     Dosage: 2 MG, UNK
  7. VALACYCLOVIR HYDROCHLORIDE [Concomitant]
     Dosage: 500 MG, UNK
  8. BYSTOLIC [Concomitant]
     Dosage: 5 MG, UNK
  9. NEXIUM [Concomitant]
     Dosage: 40 MG, QD
  10. PROVENTIL [Concomitant]
     Dosage: 90 MICROGRAM, QD

REACTIONS (3)
  - TRI-IODOTHYRONINE INCREASED [None]
  - GLOMERULAR FILTRATION RATE DECREASED [None]
  - THYROXINE INCREASED [None]
